FAERS Safety Report 18990635 (Version 1)
Quarter: 2021Q1

REPORT INFORMATION
  Report Type: Spontaneous
  Country: US (occurrence: US)
  Receive Date: 20210310
  Receipt Date: 20210310
  Transmission Date: 20210420
  Serious: Yes (Disabling)
  Sender: FDA-Public Use
  Company Number: US-SA-2021SA080046

PATIENT
  Sex: Female

DRUGS (26)
  1. MONTELUKAST SODIUM. [Concomitant]
     Active Substance: MONTELUKAST SODIUM
  2. ONE?A?DAY WOMEN^S [Concomitant]
     Active Substance: VITAMINS
  3. PROAIR HFA [Concomitant]
     Active Substance: ALBUTEROL SULFATE
  4. DUPIXENT [Suspect]
     Active Substance: DUPILUMAB
     Indication: NASAL POLYPS
  5. DUPIXENT [Suspect]
     Active Substance: DUPILUMAB
     Indication: CHRONIC OBSTRUCTIVE PULMONARY DISEASE
  6. CALCIUM CARBONATE. [Concomitant]
     Active Substance: CALCIUM CARBONATE
  7. B?50 COMPLEX [VITAMIN B COMPLEX] [Concomitant]
  8. FISH LIVER OIL [Concomitant]
  9. FIBER [Concomitant]
     Active Substance: PSYLLIUM HUSK
  10. AZO CRANBERRY [Concomitant]
     Active Substance: DIETARY SUPPLEMENT
  11. PREVACID [Concomitant]
     Active Substance: LANSOPRAZOLE
  12. GLUCOSAMINE + CHONDORITIN [Concomitant]
  13. SYMBICORT [Concomitant]
     Active Substance: BUDESONIDE\FORMOTEROL FUMARATE DIHYDRATE
  14. DUPIXENT [Suspect]
     Active Substance: DUPILUMAB
     Indication: ASTHMA
     Dosage: 300 MG, QOW
     Route: 058
     Dates: start: 201903
  15. LYSINE [Concomitant]
     Active Substance: LYSINE
  16. POTASSIUM 99 [Concomitant]
  17. FUNGI?NAIL [Concomitant]
  18. PEPCID COMPLETE [Concomitant]
     Active Substance: CALCIUM CARBONATE\FAMOTIDINE\MAGNESIUM HYDROXIDE
  19. NIACIN. [Concomitant]
     Active Substance: NIACIN
  20. MUCINEX [Concomitant]
     Active Substance: GUAIFENESIN
  21. TOPROL XL [Concomitant]
     Active Substance: METOPROLOL SUCCINATE
  22. ZYRTEC?D [Concomitant]
     Active Substance: CETIRIZINE HYDROCHLORIDE\PSEUDOEPHEDRINE HYDROCHLORIDE
  23. SYNTHROID [Concomitant]
     Active Substance: LEVOTHYROXINE SODIUM
  24. CALCIUM 500+D3 [Concomitant]
     Active Substance: CALCIUM CARBONATE\CHOLECALCIFEROL
  25. ASPIRIN 1000 [Concomitant]
  26. ZINC. [Concomitant]
     Active Substance: ZINC

REACTIONS (4)
  - Cough [Not Recovered/Not Resolved]
  - Ear discomfort [Not Recovered/Not Resolved]
  - Loss of personal independence in daily activities [Not Recovered/Not Resolved]
  - Product use in unapproved indication [Unknown]

NARRATIVE: CASE EVENT DATE: 201903
